FAERS Safety Report 9217164 (Version 3)
Quarter: 2013Q3

REPORT INFORMATION
  Report Type: Spontaneous
  Country: IE (occurrence: IE)
  Receive Date: 20130408
  Receipt Date: 20130701
  Transmission Date: 20140515
  Serious: Yes (Hospitalization, Other)
  Sender: FDA-Public Use
  Company Number: IE-JNJFOC-20130401421

PATIENT
  Sex: Male

DRUGS (7)
  1. XARELTO [Suspect]
     Indication: ATRIAL FIBRILLATION
     Route: 048
     Dates: start: 20130207
  2. XARELTO [Suspect]
     Indication: CEREBROVASCULAR ACCIDENT PROPHYLAXIS
     Route: 048
     Dates: start: 20130207
  3. DRONEDARONE [Concomitant]
     Route: 065
  4. ROSUVASTATIN [Concomitant]
     Route: 065
  5. OMEPRAZOLE [Concomitant]
     Route: 065
  6. ELTROXIN [Concomitant]
     Route: 065
  7. WARFARIN [Concomitant]
     Dosage: AS PER THE INR
     Route: 065

REACTIONS (2)
  - Thrombosis [Recovered/Resolved]
  - Drug ineffective [Unknown]
